FAERS Safety Report 13897785 (Version 1)
Quarter: 2017Q3

REPORT INFORMATION
  Report Type: Spontaneous
  Country: US (occurrence: None)
  Receive Date: 20170817
  Receipt Date: 20170817
  Transmission Date: 20171127
  Serious: Yes (Hospitalization)
  Sender: FDA-Public Use
  Company Number: None

PATIENT
  Age: 53 Year
  Sex: Female

DRUGS (9)
  1. FAMOTIDINE. [Concomitant]
     Active Substance: FAMOTIDINE
  2. GABAPENTIN. [Concomitant]
     Active Substance: GABAPENTIN
  3. MULTIVITAMIN [Concomitant]
     Active Substance: VITAMINS
  4. ENOXAPARIN [Suspect]
     Active Substance: ENOXAPARIN
     Indication: DEEP VEIN THROMBOSIS
     Dosage: 80 MG EVERY 12 HOURS SC
     Route: 058
     Dates: start: 20170531, end: 20170605
  5. CALCIUM [Concomitant]
     Active Substance: CALCIUM
  6. ACYCLOVIR. [Concomitant]
     Active Substance: ACYCLOVIR
  7. DOCUSATE [Concomitant]
     Active Substance: DOCUSATE
  8. IRON [Concomitant]
     Active Substance: IRON
  9. SULFAMETHOXAZOLE/TRIMETHOPRIM [Concomitant]
     Active Substance: SULFAMETHOXAZOLE\TRIMETHOPRIM

REACTIONS (4)
  - Thrombocytopenia [None]
  - Arterial haemorrhage [None]
  - Renal failure [None]
  - Shock haemorrhagic [None]

NARRATIVE: CASE EVENT DATE: 20170608
